FAERS Safety Report 4363982-2 (Version None)
Quarter: 2004Q2

REPORT INFORMATION
  Report Type: 
  Country: None (occurrence: None)
  Receive Date: 20040519
  Receipt Date: 20040507
  Transmission Date: 20050107
  Serious: Yes (Hospitalization)
  Sender: FDA-Public Use
  Company Number: FR-JNJFOC-20031005438

PATIENT
  Age: 43 Year
  Sex: Female

DRUGS (4)
  1. HALDOL [Suspect]
     Indication: SCHIZOPHRENIA
     Dosage: 50 MG, 1 IN 30 DAY, INTRA-MUSCULAR; SEE IMAGE
     Route: 030
     Dates: start: 20030201, end: 20030805
  2. HALDOL [Suspect]
     Indication: SCHIZOPHRENIA
     Dosage: 50 MG, 1 IN 30 DAY, INTRA-MUSCULAR; SEE IMAGE
     Route: 030
     Dates: start: 20030806, end: 20031001
  3. DEPO-PROVERA [Concomitant]
  4. TERCIAN (CYAMEMAZIN) [Concomitant]

REACTIONS (2)
  - AGITATION [None]
  - PARKINSONISM [None]
